FAERS Safety Report 11578593 (Version 1)
Quarter: 2015Q3

REPORT INFORMATION
  Report Type: Spontaneous
  Country: US (occurrence: US)
  Receive Date: 20150930
  Receipt Date: 20150930
  Transmission Date: 20151125
  Serious: No
  Sender: FDA-Public Use
  Company Number: PHEH2015US018968

PATIENT
  Sex: Female

DRUGS (1)
  1. AFINITOR [Suspect]
     Active Substance: EVEROLIMUS
     Indication: PRODUCT USED FOR UNKNOWN INDICATION
     Dosage: 10 MG, UNK
     Route: 065

REACTIONS (8)
  - Malaise [Unknown]
  - Rash [Unknown]
  - Fatigue [Unknown]
  - Stomatitis [Unknown]
  - Weight decreased [Unknown]
  - Diarrhoea [Unknown]
  - Cough [Unknown]
  - Herpes zoster [Unknown]
